FAERS Safety Report 16085461 (Version 2)
Quarter: 2019Q2

REPORT INFORMATION
  Report Type: Spontaneous
  Country: US (occurrence: US)
  Receive Date: 20190318
  Receipt Date: 20190523
  Transmission Date: 20190711
  Serious: No
  Sender: FDA-Public Use
  Company Number: US-LEXICON PHARMACEUTICALS, INC-19-1606-00273

PATIENT
  Sex: Female

DRUGS (9)
  1. PSEUDOEPHEDRINE. [Concomitant]
     Active Substance: PSEUDOEPHEDRINE HYDROCHLORIDE
  2. SOMATULINE [Concomitant]
     Active Substance: LANREOTIDE ACETATE
  3. NASACORT [Concomitant]
     Active Substance: TRIAMCINOLONE ACETONIDE
  4. MULTIVITAMIN [Concomitant]
     Active Substance: VITAMINS
  5. VIVELLE-DOT [Concomitant]
     Active Substance: ESTRADIOL
  6. LOMOTIL [Concomitant]
     Active Substance: ATROPINE SULFATE\DIPHENOXYLATE HYDROCHLORIDE
  7. TELOTRISTAT ETHYL [Suspect]
     Active Substance: TELOTRISTAT ETHYL
     Indication: CARCINOID SYNDROME
     Route: 048
     Dates: start: 20190218
  8. TELOTRISTAT ETHYL [Suspect]
     Active Substance: TELOTRISTAT ETHYL
     Indication: CARCINOID SYNDROME
     Route: 048
     Dates: start: 20190412
  9. ATIVAN [Concomitant]
     Active Substance: LORAZEPAM

REACTIONS (4)
  - Abdominal pain [Not Recovered/Not Resolved]
  - Flatulence [Not Recovered/Not Resolved]
  - Fatigue [Not Recovered/Not Resolved]
  - Nausea [Not Recovered/Not Resolved]
